FAERS Safety Report 19221957 (Version 1)
Quarter: 2021Q2

REPORT INFORMATION
  Report Type: Spontaneous
  Country: US (occurrence: US)
  Receive Date: 20210505
  Receipt Date: 20210505
  Transmission Date: 20210717
  Serious: Yes (Hospitalization)
  Sender: FDA-Public Use
  Company Number: None

PATIENT
  Sex: Female

DRUGS (10)
  1. VITAMIN D3 [Concomitant]
     Active Substance: CHOLECALCIFEROL
  2. POTASSIUM CHLORIDE. [Concomitant]
     Active Substance: POTASSIUM CHLORIDE
  3. LISINOPR/HCTZ [Concomitant]
  4. MULTIPLE VIT/IRON [Concomitant]
  5. CELEBREX [Concomitant]
     Active Substance: CELECOXIB
  6. METHOTREXATE. [Concomitant]
     Active Substance: METHOTREXATE
  7. CALCIUM 600+D [Concomitant]
     Active Substance: CALCIUM\VITAMIN D
  8. FOLIC ACID. [Concomitant]
     Active Substance: FOLIC ACID
  9. HUMIRA [Suspect]
     Active Substance: ADALIMUMAB
     Indication: COLITIS
     Dosage: 40MG(0.4ML) QOW SQ
     Route: 058
     Dates: start: 20190927
  10. ULORIC [Concomitant]
     Active Substance: FEBUXOSTAT

REACTIONS (3)
  - Therapy interrupted [None]
  - Hip arthroplasty [None]
  - Condition aggravated [None]
